FAERS Safety Report 14256697 (Version 4)
Quarter: 2019Q3

REPORT INFORMATION
  Report Type: Spontaneous
  Country: US (occurrence: US)
  Receive Date: 20171206
  Receipt Date: 20190909
  Transmission Date: 20191004
  Serious: Yes (Hospitalization)
  Sender: FDA-Public Use
  Company Number: US-PFIZER INC-2017518345

PATIENT
  Age: 78 Year
  Sex: Male
  Weight: 74.39 kg

DRUGS (16)
  1. CARVEDILOL. [Concomitant]
     Active Substance: CARVEDILOL
     Dosage: 6.25 MG, 2X/DAY
  2. DONEPEZIL HCL [Concomitant]
     Active Substance: DONEPEZIL HYDROCHLORIDE
     Dosage: 5 MG, 1X/DAY
  3. BUMETANIDE. [Concomitant]
     Active Substance: BUMETANIDE
     Dosage: 1 MG, AS NEEDED (1 A DAY WHEN NEEDED EXTRA)
  4. VENTOLIN HFA [Concomitant]
     Active Substance: ALBUTEROL SULFATE
     Dosage: 2 PUFFS EVERY 6 HR, AS NEEDED
  5. GABAPENTIN. [Concomitant]
     Active Substance: GABAPENTIN
     Indication: HYPOAESTHESIA
     Dosage: 100 MG, 3X/DAY
  6. ATORVASTATIN [Concomitant]
     Active Substance: ATORVASTATIN
     Dosage: 40 MG, 1X/DAY
  7. BUSPIRONE [Concomitant]
     Active Substance: BUSPIRONE HYDROCHLORIDE
     Dosage: 15 MG, 3X/DAY
  8. GABAPENTIN. [Concomitant]
     Active Substance: GABAPENTIN
     Indication: NEUROPATHY PERIPHERAL
     Dosage: 100 MG, 2X/DAY (100MG, BY MOUTH, TWICE A DAY ONE IN MORNING AND ONE IN AFTERNOON)
     Route: 048
  9. WARFARIN [Concomitant]
     Active Substance: WARFARIN
     Indication: CARDIAC DISORDER
     Dosage: 5 MG, 1X/DAY
     Route: 048
  10. SPIRONOLACTONE. [Concomitant]
     Active Substance: SPIRONOLACTONE
     Dosage: 25 MG, UNK
     Route: 048
  11. FLUOXETINE [Concomitant]
     Active Substance: FLUOXETINE HYDROCHLORIDE
     Indication: VASCULAR DEMENTIA
     Dosage: 6.25 MG, 1X/DAY
     Route: 048
  12. FUROSEMIDE. [Concomitant]
     Active Substance: FUROSEMIDE
     Dosage: 20 MG, 1X/DAY
  13. LISINOPRIL. [Concomitant]
     Active Substance: LISINOPRIL
     Dosage: 5 MG, 1X/DAY
  14. OLANZAPINE. [Concomitant]
     Active Substance: OLANZAPINE
     Dosage: 5 MG, 1X/DAY
  15. BUSPIRONE [Concomitant]
     Active Substance: BUSPIRONE HYDROCHLORIDE
     Indication: ANXIETY
     Dosage: 50 MG, 3X/DAY
     Route: 048
  16. PRISTIQ EXTENDED-RELEASE [Suspect]
     Active Substance: DESVENLAFAXINE SUCCINATE
     Indication: VASCULAR DEMENTIA
     Dosage: 50 MG, 1X/DAY (50MG, TABLET, BY MOUTH, ONCE A DAY EVERY MORNING)
     Route: 048

REACTIONS (6)
  - Product use in unapproved indication [Unknown]
  - Fluid retention [Recovered/Resolved]
  - Off label use [Unknown]
  - Body height decreased [Unknown]
  - Gait disturbance [Recovering/Resolving]
  - Swelling [Unknown]

NARRATIVE: CASE EVENT DATE: 201708
